FAERS Safety Report 7777384-X (Version None)
Quarter: 2011Q3

REPORT INFORMATION
  Report Type: 
  Country: None (occurrence: None)
  Receive Date: 20110926
  Receipt Date: 20110923
  Transmission Date: 20111222
  Serious: Yes (Hospitalization)
  Sender: FDA-Public Use
  Company Number: PHHO2010SE16319

PATIENT
  Sex: Male
  Weight: 83.6 kg

DRUGS (15)
  1. PLACEBO [Suspect]
     Indication: CARDIOVASCULAR DISORDER
     Dosage: CODE NOT BROKEN
     Route: 048
     Dates: start: 20080707, end: 20101023
  2. BLINDED NO TREATMENT RECEIVED [Suspect]
     Indication: CARDIOVASCULAR DISORDER
     Dosage: CODE NOT BROKEN
     Route: 048
     Dates: start: 20080707, end: 20101023
  3. NITROGLYCERIN [Suspect]
  4. ISRADIPINE [Suspect]
  5. BLINDED ALISKIREN [Suspect]
     Indication: CARDIOVASCULAR DISORDER
     Dosage: CODE NOT BROKEN
     Route: 048
     Dates: start: 20080707, end: 20101023
  6. BLINDED NO TREATMENT RECEIVED [Suspect]
     Dosage: NO TREATMENT
     Dates: start: 20101024, end: 20101025
  7. BLINDED NO TREATMENT RECEIVED [Suspect]
     Dosage: CODE NOT  BROKEN
     Route: 048
     Dates: start: 20101026
  8. PLACEBO [Suspect]
     Dosage: NO TREATMENT
     Dates: start: 20101024, end: 20101025
  9. PLACEBO [Suspect]
     Dosage: CODE NOT  BROKEN
     Route: 048
     Dates: start: 20101026
  10. METOPROLOL TARTRATE [Suspect]
  11. DOXAZOSIN MESYLATE [Suspect]
     Indication: HYPERTENSION
  12. BLINDED ALISKIREN [Suspect]
     Dosage: CODE NOT  BROKEN
     Route: 048
     Dates: start: 20101026
  13. FUROSEMIDE [Suspect]
     Indication: HYPERTENSION
  14. CAPTOPRIL [Suspect]
     Indication: HYPERTENSION
  15. BLINDED ALISKIREN [Suspect]
     Dosage: NO TREATMENT
     Dates: start: 20101024, end: 20101025

REACTIONS (3)
  - HYPOTENSION [None]
  - DIZZINESS [None]
  - PRESYNCOPE [None]
